FAERS Safety Report 5335015-2 (Version None)
Quarter: 2007Q2

REPORT INFORMATION
  Report Type: 
  Country: None (occurrence: None)
  Receive Date: 20070522
  Receipt Date: 20070507
  Transmission Date: 20071010
  Serious: Yes (Other)
  Sender: FDA-Public Use
  Company Number: JPI-P-000899

PATIENT
  Age: 59 Year
  Sex: Male

DRUGS (7)
  1. XYREM [Suspect]
     Indication: CATAPLEXY
     Dosage: SEE IMAGE
     Route: 048
     Dates: start: 20061220, end: 20070208
  2. XYREM [Suspect]
     Indication: CATAPLEXY
     Dosage: SEE IMAGE
     Route: 048
     Dates: start: 20070209
  3. MODAFINIL [Concomitant]
  4. CLOMIPRAMINE HCL [Concomitant]
  5. METFORMIN EMBONATE (METFORMIN EMBONATE) [Concomitant]
  6. TRIMETAZIDINE HYDROCHLORIDE (TRIMETAZIDINE HYDROCHLORIDE) [Concomitant]
  7. FENOFIBRATE [Concomitant]

REACTIONS (2)
  - AGGRESSION [None]
  - IRRITABILITY [None]
